FAERS Safety Report 19020333 (Version 4)
Quarter: 2021Q2

REPORT INFORMATION
  Report Type: Report from Study
  Country: IL (occurrence: IL)
  Receive Date: 20210317
  Receipt Date: 20210408
  Transmission Date: 20210717
  Serious: Yes (Hospitalization)
  Sender: FDA-Public Use
  Company Number: IL-KARYOPHARM THERAPEUTICS, INC.-2021KPT000262

PATIENT
  Age: 71 Year
  Sex: Male
  Weight: 61 kg

DRUGS (21)
  1. SELINEXOR [Suspect]
     Active Substance: SELINEXOR
     Dosage: 60 MG, WEEKLY
     Route: 048
     Dates: start: 20201123, end: 20201207
  2. SELINEXOR [Suspect]
     Active Substance: SELINEXOR
     Dosage: 40 MG, WEEKLY
     Route: 048
     Dates: start: 20210127, end: 20210217
  3. DEXAMETHASONE. [Concomitant]
     Active Substance: DEXAMETHASONE
     Indication: PROPHYLAXIS
     Dosage: 4 MG, BID
     Route: 048
     Dates: start: 20210217
  4. CARDILOC [Concomitant]
     Active Substance: BISOPROLOL FUMARATE
     Indication: HYPERTENSION
     Dosage: 1.25 MG, QD
     Route: 048
     Dates: start: 2019
  5. FERINJECT [Concomitant]
     Active Substance: FERRIC CARBOXYMALTOSE
     Dosage: 250 UNK, SINGLE
     Dates: start: 20210209, end: 20210209
  6. IRON [Concomitant]
     Active Substance: IRON
     Indication: ANAEMIA
     Dosage: 1 DOSAGE FORM, QD
     Route: 048
     Dates: start: 20210104, end: 20210128
  7. CALCILESS [CALCIUM CARBONATE;COLECALCIFEROL;CYANOCOBALAMIN] [Concomitant]
     Indication: HYPOPHOSPHATAEMIA
     Dosage: 1 DOSAGE FORM, QD
     Route: 048
     Dates: start: 20201216
  8. LOSARTAN. [Concomitant]
     Active Substance: LOSARTAN
     Indication: HYPERTENSION
     Dosage: 12.5 MG, QD
     Route: 048
     Dates: start: 2015
  9. SPIRIVA [Concomitant]
     Active Substance: TIOTROPIUM BROMIDE MONOHYDRATE
     Indication: CHRONIC OBSTRUCTIVE PULMONARY DISEASE
     Dosage: 18 UG, QD
     Dates: start: 2015
  10. DEXAMETHASONE. [Concomitant]
     Active Substance: DEXAMETHASONE
     Indication: FATIGUE
     Dosage: 8 MG, BID
     Route: 042
     Dates: start: 20201123
  11. DOCETAXEL. [Suspect]
     Active Substance: DOCETAXEL
     Indication: NON-SMALL CELL LUNG CANCER
     Dosage: 60 MG/M2, 1X/3 WEEKS
     Route: 042
     Dates: start: 20201123, end: 20210217
  12. FAMOTIDINE. [Concomitant]
     Active Substance: FAMOTIDINE
     Indication: DYSPEPSIA
     Dosage: 20 MG, QD
     Route: 048
     Dates: start: 2019
  13. PEPTAMEN PREBIO [Concomitant]
     Indication: WEIGHT DECREASED
     Dosage: 250 ML, TID
     Route: 048
     Dates: start: 20210223
  14. SELINEXOR [Suspect]
     Active Substance: SELINEXOR
     Indication: NON-SMALL CELL LUNG CANCER
     Dosage: 100 MG, WEEKLY
     Route: 048
     Dates: start: 20201109, end: 20201109
  15. CARTIA XT [Concomitant]
     Active Substance: DILTIAZEM HYDROCHLORIDE
     Indication: HYPERTENSION
     Dosage: 100 MG, QD
     Route: 048
     Dates: start: 2016
  16. ATORVASTATIN [Concomitant]
     Active Substance: ATORVASTATIN
     Indication: HYPERLIPIDAEMIA
     Dosage: 10 MG, QD
     Route: 048
     Dates: start: 2015
  17. FERINJECT [Concomitant]
     Active Substance: FERRIC CARBOXYMALTOSE
     Indication: ANAEMIA
     Dosage: 250 MG, SINGLE
     Dates: start: 20210201, end: 20210201
  18. SELINEXOR [Suspect]
     Active Substance: SELINEXOR
     Dosage: 60 MG, WEEKLY
     Route: 048
     Dates: start: 20201216, end: 20210120
  19. ACETYLCYSTEIN [Concomitant]
     Active Substance: ACETYLCYSTEINE
     Indication: CHRONIC OBSTRUCTIVE PULMONARY DISEASE
     Dosage: 200 MG, TID
     Route: 048
     Dates: start: 2015
  20. BLOOD [Concomitant]
     Active Substance: WHOLE BLOOD
     Indication: ANAEMIA
     Dosage: UNK UNK, QD
     Dates: start: 20210127, end: 20210127
  21. CODEINE [Concomitant]
     Active Substance: CODEINE
     Indication: COUGH
     Dosage: 10 MG, TID
     Dates: start: 20210127

REACTIONS (1)
  - Encephalopathy [Recovered/Resolved]

NARRATIVE: CASE EVENT DATE: 20210222
